FAERS Safety Report 5092770-7 (Version None)
Quarter: 2006Q3

REPORT INFORMATION
  Report Type: 
  Country: None (occurrence: None)
  Receive Date: 20060825
  Receipt Date: 20060811
  Transmission Date: 20061208
  Serious: Yes (Hospitalization)
  Sender: FDA-Public Use
  Company Number: 2006PV017866

PATIENT
  Age: 75 Year
  Sex: Male

DRUGS (1)
  1. BYETTA [Suspect]
     Indication: DIABETES MELLITUS
     Dosage: SC
     Route: 058
     Dates: start: 20060510, end: 20060715

REACTIONS (4)
  - ATRIAL FIBRILLATION [None]
  - CARDIAC TAMPONADE [None]
  - DRESSLER'S SYNDROME [None]
  - HYPOTENSION [None]
